FAERS Safety Report 20583275 (Version 1)
Quarter: 2022Q1

REPORT INFORMATION
  Report Type: Spontaneous
  Country: CN (occurrence: CN)
  Receive Date: 20220311
  Receipt Date: 20220311
  Transmission Date: 20220423
  Serious: Yes (Life-Threatening, Hospitalization, Other)
  Sender: FDA-Public Use
  Company Number: CN-LUPIN PHARMACEUTICALS INC.-2022-03294

PATIENT
  Age: 8 Year
  Sex: Male

DRUGS (7)
  1. METHYLPREDNISOLONE [Suspect]
     Active Substance: METHYLPREDNISOLONE
     Indication: Henoch-Schonlein purpura
     Dosage: UNK
     Route: 065
  2. METHYLPREDNISOLONE [Suspect]
     Active Substance: METHYLPREDNISOLONE
     Dosage: 200 MG 1ST DAY OF ADMISSION
     Route: 065
  3. METHYLPREDNISOLONE [Suspect]
     Active Substance: METHYLPREDNISOLONE
     Dosage: 700 MG 3RD DAY OF ADMISSION
     Route: 065
  4. METHYLPREDNISOLONE [Suspect]
     Active Substance: METHYLPREDNISOLONE
     Dosage: 700 MG 2ND DAY OF ADMISSION
     Route: 065
  5. METHYLPREDNISOLONE [Suspect]
     Active Substance: METHYLPREDNISOLONE
     Dosage: 2 MILLIGRAM/KILOGRAM, QD DAY 3
     Route: 065
  6. SOMATOSTATIN [Suspect]
     Active Substance: SOMATOSTATIN
     Indication: Henoch-Schonlein purpura
     Dosage: UNK
     Route: 065
  7. BATROXOBIN [Suspect]
     Active Substance: BATROXOBIN
     Indication: Henoch-Schonlein purpura
     Dosage: UNK
     Route: 065

REACTIONS (8)
  - Duodenal ulcer [Recovered/Resolved]
  - Intestinal perforation [Recovered/Resolved]
  - Peritonitis [Recovered/Resolved]
  - Abdominal distension [Recovered/Resolved]
  - Intestinal congestion [Recovered/Resolved]
  - Gastrointestinal oedema [Recovered/Resolved]
  - Drug ineffective for unapproved indication [Unknown]
  - Off label use [Unknown]
